FAERS Safety Report 10026322 (Version 1)
Quarter: 2014Q1

REPORT INFORMATION
  Report Type: Spontaneous
  Country: US (occurrence: US)
  Receive Date: 20140321
  Receipt Date: 20140321
  Transmission Date: 20141002
  Serious: No
  Sender: FDA-Public Use
  Company Number: US-009507513-1403USA007487

PATIENT
  Age: 52 Year
  Sex: Female

DRUGS (1)
  1. JANUMET [Suspect]
     Indication: TYPE 2 DIABETES MELLITUS
     Dosage: 1 TABLET (STRENGTH EPORTED AS 500MG), 2 TIMES A DAY
     Route: 048
     Dates: start: 201111, end: 201311

REACTIONS (1)
  - Pain in extremity [Recovered/Resolved with Sequelae]
